FAERS Safety Report 5419283-4 (Version None)
Quarter: 2007Q3

REPORT INFORMATION
  Report Type: 
  Country: None (occurrence: None)
  Receive Date: 20070815
  Receipt Date: 20070806
  Transmission Date: 20080115
  Serious: Yes (Hospitalization)
  Sender: FDA-Public Use
  Company Number: 2007BI014726

PATIENT
  Age: 33 Year
  Sex: Female

DRUGS (6)
  1. AVONEX [Suspect]
     Indication: MULTIPLE SCLEROSIS
     Dosage: IM
     Route: 030
     Dates: end: 20070601
  2. NOVANTRONE [Concomitant]
  3. NEURONTIN [Concomitant]
  4. BACLOFEN [Concomitant]
  5. ZOCOR [Concomitant]
  6. ZYRTEC [Concomitant]

REACTIONS (3)
  - BLOOD COUNT ABNORMAL [None]
  - PYREXIA [None]
  - WHITE BLOOD CELL COUNT DECREASED [None]
